FAERS Safety Report 11479340 (Version 1)
Quarter: 2015Q3

REPORT INFORMATION
  Report Type: Report from Study
  Country: GR (occurrence: GR)
  Receive Date: 20150909
  Receipt Date: 20150909
  Transmission Date: 20151125
  Serious: Yes (Hospitalization)
  Sender: FDA-Public Use
  Company Number: GR-APOPHARMA USA, INC.-2015AP012474

PATIENT
  Age: 3 Year
  Sex: Male

DRUGS (3)
  1. DEFERIPRONE [Suspect]
     Active Substance: DEFERIPRONE
     Indication: HAEMOGLOBINOPATHY
     Dosage: 336 MG, TID
     Route: 048
     Dates: start: 20150603, end: 20150823
  2. HYDROXYZINE [Concomitant]
     Active Substance: HYDROXYZINE\HYDROXYZINE HYDROCHLORIDE
     Indication: URTICARIA
     Dosage: 3 ML, TID
     Route: 048
     Dates: start: 20150826, end: 20150828
  3. PREDNISOLONE. [Concomitant]
     Active Substance: PREDNISOLONE
     Indication: URTICARIA
     Dosage: 2.5 MG, QD
     Route: 048
     Dates: start: 20150826, end: 20150828

REACTIONS (1)
  - Neutropenia [Recovered/Resolved]

NARRATIVE: CASE EVENT DATE: 20150828
